FAERS Safety Report 8723536 (Version 3)
Quarter: 2012Q4

REPORT INFORMATION
  Report Type: 
  Country: CN (occurrence: CN)
  Receive Date: 20120814
  Receipt Date: 20120905
  Transmission Date: 20130627
  Serious: Yes (Life-Threatening, Hospitalization)
  Sender: FDA-Public Use
  Company Number: CN-ROCHE-1100704

PATIENT
  Age: 66 Year
  Sex: Female

DRUGS (1)
  1. MABTHERA [Suspect]
     Indication: DIFFUSE LARGE B-CELL LYMPHOMA
     Route: 041
     Dates: start: 20120808

REACTIONS (6)
  - Altered state of consciousness [Recovering/Resolving]
  - Hyperpyrexia [Recovering/Resolving]
  - Hypertension [Recovering/Resolving]
  - Oliguria [Recovering/Resolving]
  - Dyspnoea [Recovering/Resolving]
  - Tachycardia [Recovering/Resolving]
